FAERS Safety Report 22540132 (Version 1)
Quarter: 2023Q2

REPORT INFORMATION
  Report Type: Spontaneous
  Country: US (occurrence: None)
  Receive Date: 20230608
  Receipt Date: 20230608
  Transmission Date: 20230722
  Serious: Yes (Death)
  Sender: FDA-Public Use
  Company Number: None

PATIENT
  Age: 79 Year
  Sex: Female

DRUGS (2)
  1. ASPIRIN [Suspect]
     Active Substance: ASPIRIN
  2. METFORMIN [Suspect]
     Active Substance: METFORMIN HYDROCHLORIDE

REACTIONS (15)
  - Mental status changes [None]
  - Melaena [None]
  - Blood pressure decreased [None]
  - Blood creatinine increased [None]
  - Haemoglobin decreased [None]
  - Blood potassium increased [None]
  - Liver function test increased [None]
  - International normalised ratio increased [None]
  - Gastrointestinal haemorrhage [None]
  - Oesophageal varices haemorrhage [None]
  - Acidosis [None]
  - Oesophagitis ulcerative [None]
  - Gastric ulcer [None]
  - Duodenal ulcer [None]
  - Gastrointestinal ulcer haemorrhage [None]

NARRATIVE: CASE EVENT DATE: 20230106
